FAERS Safety Report 6963296-8 (Version None)
Quarter: 2010Q3

REPORT INFORMATION
  Report Type: 
  Country: None (occurrence: None)
  Receive Date: 20100823
  Receipt Date: 20100610
  Transmission Date: 20110219
  Serious: No
  Sender: FDA-Public Use
  Company Number: 014266

PATIENT
  Sex: Female

DRUGS (1)
  1. CIMZIA [Suspect]
     Dosage: DOSE SUBCUTANEOUS
     Route: 058
     Dates: start: 20100215

REACTIONS (1)
  - DRUG EFFECT DECREASED [None]
